FAERS Safety Report 8355915 (Version 2)
Quarter: 2012Q4

REPORT INFORMATION
  Report Type: Spontaneous
  Country: US (occurrence: US)
  Receive Date: 20120126
  Receipt Date: 20121218
  Transmission Date: 20130627
  Serious: Yes (Other)
  Sender: FDA-Public Use
  Company Number: PHEH2012US001678

PATIENT
  Age: 68 Year
  Sex: Female

DRUGS (3)
  1. ZOMETA (ZOLEDRONATE) UNKNOWN [Suspect]
     Indication: METASTASES TO BONE
     Dates: start: 200907, end: 201010
  2. DENOSUMAB [Suspect]
  3. UNSPECIFIED INGREDIENT [Suspect]

REACTIONS (3)
  - Renal disorder [Unknown]
  - Tooth loss [Unknown]
  - Gingival swelling [Unknown]
